FAERS Safety Report 5982054-4 (Version None)
Quarter: 2008Q4

REPORT INFORMATION
  Report Type: 
  Country: None (occurrence: None)
  Receive Date: 20081202
  Receipt Date: 20081119
  Transmission Date: 20090506
  Serious: Yes (Other)
  Sender: FDA-Public Use
  Company Number: 2008-04373

PATIENT
  Age: 56 Year
  Sex: Male

DRUGS (3)
  1. VELCADE [Suspect]
     Indication: MULTIPLE MYELOMA
     Dates: start: 20080929
  2. MS CONTIN [Concomitant]
  3. PERCOCET [Concomitant]

REACTIONS (3)
  - CONFUSIONAL STATE [None]
  - DISEASE PROGRESSION [None]
  - DYSARTHRIA [None]
